FAERS Safety Report 14920735 (Version 5)
Quarter: 2019Q1

REPORT INFORMATION
  Report Type: Report from Study
  Country: JP (occurrence: JP)
  Receive Date: 20180521
  Receipt Date: 20190203
  Transmission Date: 20190417
  Serious: Yes (Other)
  Sender: FDA-Public Use
  Company Number: PHJP2017JP025134

PATIENT
  Age: 49 Year
  Sex: Female

DRUGS (18)
  1. SIGNIFOR LAR [Suspect]
     Active Substance: PASIREOTIDE
     Dosage: 40 MG PER 1 TIME
     Route: 030
     Dates: start: 20170831
  2. SIGNIFOR LAR [Suspect]
     Active Substance: PASIREOTIDE
     Dosage: 60 MG PER 1 TIME
     Route: 030
     Dates: start: 20171025
  3. CABASER [Concomitant]
     Active Substance: CABERGOLINE
     Dosage: 0.5 MG, UNK
     Route: 048
     Dates: start: 20170928, end: 20171025
  4. SIGNIFOR LAR [Suspect]
     Active Substance: PASIREOTIDE
     Dosage: 60 MG PER 1 TIME
     Route: 030
     Dates: start: 20171220
  5. CABASER [Concomitant]
     Active Substance: CABERGOLINE
     Dosage: UNK
  6. SIGNIFOR LAR [Suspect]
     Active Substance: PASIREOTIDE
     Indication: ACROMEGALY
     Dosage: 40 MG PER 1 TIME
     Route: 030
     Dates: start: 20170705
  7. SIGNIFOR LAR [Suspect]
     Active Substance: PASIREOTIDE
     Dosage: 60 MG PER 1 TIME
     Route: 030
     Dates: start: 20171122
  8. CABASER [Concomitant]
     Active Substance: CABERGOLINE
     Dosage: 1 MG, UNK
     Route: 048
     Dates: start: 20171130, end: 20180411
  9. SOMAVERT [Concomitant]
     Active Substance: PEGVISOMANT
     Indication: ACROMEGALY
     Dosage: 10 MG, UNK
     Route: 058
     Dates: start: 20180411, end: 20180529
  10. CABASER [Concomitant]
     Active Substance: CABERGOLINE
     Indication: ACROMEGALY
     Dosage: 0.25 MG, UNK
     Route: 048
     Dates: end: 20170927
  11. CABASER [Concomitant]
     Active Substance: CABERGOLINE
     Dosage: 1.75 MG, UNK
     Route: 048
     Dates: start: 20171026, end: 20171129
  12. SIGNIFOR LAR [Suspect]
     Active Substance: PASIREOTIDE
     Dosage: 40 MG PER 1 TIME
     Route: 030
     Dates: start: 20170803
  13. SIGNIFOR LAR [Suspect]
     Active Substance: PASIREOTIDE
     Dosage: 60 MG PER 1 TIME
     Route: 030
     Dates: start: 20170927
  14. SIGNIFOR LAR [Suspect]
     Active Substance: PASIREOTIDE
     Dosage: 60 MG PER 1 TIME
     Route: 030
     Dates: start: 20180214
  15. SIGNIFOR LAR [Suspect]
     Active Substance: PASIREOTIDE
     Dosage: 60 MG PER 1 TIME
     Route: 030
     Dates: start: 20180530
  16. SIGNIFOR LAR [Suspect]
     Active Substance: PASIREOTIDE
     Dosage: 60 MG, UNK
     Route: 030
     Dates: start: 20180627, end: 20180627
  17. SIGNIFOR LAR [Suspect]
     Active Substance: PASIREOTIDE
     Dosage: 60 MG PER 1 TIME
     Route: 030
     Dates: start: 20180117
  18. SIGNIFOR LAR [Suspect]
     Active Substance: PASIREOTIDE
     Dosage: 60 MG PER 1 TIME
     Route: 030
     Dates: start: 20180314

REACTIONS (4)
  - Diabetes mellitus [Recovered/Resolved]
  - Glycosylated haemoglobin increased [Recovering/Resolving]
  - Pituitary tumour benign [Not Recovered/Not Resolved]
  - Blood glucose increased [Not Recovered/Not Resolved]

NARRATIVE: CASE EVENT DATE: 20171129
